FAERS Safety Report 4983131-7 (Version None)
Quarter: 2006Q2

REPORT INFORMATION
  Report Type: 
  Country: None (occurrence: None)
  Receive Date: 20060419
  Receipt Date: 20060330
  Transmission Date: 20061013
  Serious: Yes (Other)
  Sender: FDA-Public Use
  Company Number: 2006BH007213

PATIENT
  Age: 56 Year
  Sex: Female

DRUGS (5)
  1. DIGOXIN [Suspect]
     Indication: ATRIAL FIBRILLATION
     Dosage: 0.25 MG
  2. DIGOXIN [Suspect]
     Indication: MITRAL VALVE STENOSIS
     Dosage: 0.25 MG
  3. CLARITHROMYCIN [Suspect]
     Indication: PNEUMONIA
     Dosage: 500 MG; 2X A DAY
  4. WARFARIN SODIUM [Concomitant]
  5. AMPICILLIN/CLAVULANIC ACID [Concomitant]

REACTIONS (14)
  - ASTHENIA [None]
  - ATRIAL FIBRILLATION [None]
  - ATRIOVENTRICULAR BLOCK COMPLETE [None]
  - DIZZINESS [None]
  - DRUG INTERACTION [None]
  - DYSPNOEA [None]
  - ELECTROCARDIOGRAM T WAVE ABNORMAL [None]
  - HEART RATE DECREASED [None]
  - INTERNATIONAL NORMALISED RATIO INCREASED [None]
  - LOBAR PNEUMONIA [None]
  - NAUSEA [None]
  - NODAL RHYTHM [None]
  - THERAPEUTIC AGENT TOXICITY [None]
  - VOMITING [None]
